FAERS Safety Report 7447921-3 (Version None)
Quarter: 2011Q2

REPORT INFORMATION
  Report Type: 
  Country: None (occurrence: None)
  Receive Date: 20110429
  Receipt Date: 20100309
  Transmission Date: 20111010
  Serious: No
  Sender: FDA-Public Use
  Company Number: US-ASTRAZENECA-2010SE10299

PATIENT
  Age: 47 Year
  Sex: Male

DRUGS (2)
  1. CLARITIN [Concomitant]
  2. NEXIUM [Suspect]
     Indication: GASTROOESOPHAGEAL REFLUX DISEASE
     Route: 048
     Dates: start: 20091201

REACTIONS (2)
  - VISION BLURRED [None]
  - DRY EYE [None]
